FAERS Safety Report 10602069 (Version 2)
Quarter: 2014Q4

REPORT INFORMATION
  Report Type: Other
  Country: GB (occurrence: GB)
  Receive Date: 20141124
  Receipt Date: 20141217
  Transmission Date: 20150529
  Serious: Yes (Hospitalization)
  Sender: FDA-Public Use
  Company Number: GB-PERRIGO-14GB011477

PATIENT
  Age: 31 Year
  Sex: Male

DRUGS (2)
  1. IBUPROFEN 16028/0027 200 MG [Suspect]
     Active Substance: IBUPROFEN
     Indication: JOINT DISLOCATION
     Dosage: 400 MG, PRN
     Route: 048
     Dates: start: 20141102, end: 20141107
  2. CO-DYDRAMOL [Concomitant]
     Active Substance: ACETAMINOPHEN\DIHYDROCODEINE
     Indication: MUSCULOSKELETAL PAIN
     Dosage: UNK, UNK
     Route: 065
     Dates: start: 20141102, end: 20141107

REACTIONS (4)
  - Nausea [Unknown]
  - Acute kidney injury [Not Recovered/Not Resolved]
  - Constipation [Unknown]
  - Dyspepsia [Unknown]

NARRATIVE: CASE EVENT DATE: 20141107
